FAERS Safety Report 7280601-6 (Version None)
Quarter: 2011Q1

REPORT INFORMATION
  Report Type: 
  Country: None (occurrence: None)
  Receive Date: 20110208
  Receipt Date: 20110201
  Transmission Date: 20110831
  Serious: Yes (Other)
  Sender: FDA-Public Use
  Company Number: B0698551A

PATIENT
  Age: 44 Year
  Sex: Female

DRUGS (3)
  1. FIBRE [Concomitant]
  2. ALLI [Suspect]
     Dosage: 4TAB PER DAY
     Route: 048
     Dates: start: 20110117, end: 20110128
  3. INSULIN [Concomitant]

REACTIONS (4)
  - ABDOMINAL DISTENSION [None]
  - CONSTIPATION [None]
  - ABDOMINAL DISCOMFORT [None]
  - INTESTINAL OBSTRUCTION [None]
